FAERS Safety Report 10151993 (Version 1)
Quarter: 2014Q2

REPORT INFORMATION
  Report Type: Spontaneous
  Country: CA (occurrence: CA)
  Receive Date: 20140505
  Receipt Date: 20140505
  Transmission Date: 20141212
  Serious: Yes (Other)
  Sender: FDA-Public Use
  Company Number: CA-ROCHE-1389137

PATIENT
  Age: 53 Year
  Sex: Female

DRUGS (4)
  1. XELODA [Suspect]
     Indication: PRODUCT USED FOR UNKNOWN INDICATION
     Route: 065
  2. TYKERB [Suspect]
     Indication: PRODUCT USED FOR UNKNOWN INDICATION
     Route: 048
  3. HALAVEN [Concomitant]
     Route: 042
  4. OXYNEO [Concomitant]
     Route: 065

REACTIONS (5)
  - Back pain [Not Recovered/Not Resolved]
  - Local swelling [Not Recovered/Not Resolved]
  - Lymphoedema [Not Recovered/Not Resolved]
  - Neuropathy peripheral [Not Recovered/Not Resolved]
  - Malignant neoplasm progression [Not Recovered/Not Resolved]
